FAERS Safety Report 7884052-2 (Version None)
Quarter: 2011Q4

REPORT INFORMATION
  Report Type: 
  Country: None (occurrence: None)
  Receive Date: 20111102
  Receipt Date: 20111026
  Transmission Date: 20120403
  Serious: Yes (Hospitalization)
  Sender: FDA-Public Use
  Company Number: PHHY2011US62462

PATIENT
  Age: 50 Year
  Sex: Female
  Weight: 72.562 kg

DRUGS (2)
  1. TOBI [Suspect]
     Dosage: 300 MG, BID (3 WEEKS ON AND 2 WEEKS OFF)
     Dates: start: 20100414
  2. PULMOZYME [Concomitant]
     Dosage: UNK UKN, UNK

REACTIONS (5)
  - DYSPNOEA [None]
  - UPPER RESPIRATORY TRACT INFECTION [None]
  - CONDITION AGGRAVATED [None]
  - BRONCHIECTASIS [None]
  - PSEUDOMONAS INFECTION [None]
